FAERS Safety Report 8159818-4 (Version None)
Quarter: 2012Q1

REPORT INFORMATION
  Report Type: 
  Country: None (occurrence: None)
  Receive Date: 20120223
  Receipt Date: 20120216
  Transmission Date: 20120608
  Serious: Yes (Life-Threatening)
  Sender: FDA-Public Use
  Company Number: JP-EISAI INC-E2090-01943-SPO-JP

PATIENT
  Sex: Female

DRUGS (16)
  1. ZONISAMIDE [Suspect]
     Indication: CONVULSION PROPHYLAXIS
     Dosage: 200 MG DAILY
     Route: 048
     Dates: start: 20120105, end: 20120101
  2. MAGNESIUM SULFATE [Concomitant]
     Indication: CONSTIPATION
     Dosage: 990 MG DAILY
     Dates: start: 20111101
  3. MEILAX [Concomitant]
     Indication: ANXIETY
     Dosage: 0.5 MG DAILY
     Route: 048
     Dates: start: 20030101, end: 20120107
  4. PURSENNID [Concomitant]
     Indication: CONSTIPATION
     Dates: start: 20111101
  5. PREDNISOLONE [Concomitant]
     Indication: AUTOIMMUNE HEPATITIS
     Dosage: 2.5 MG DAILY
     Dates: start: 20030101
  6. URSO 250 [Concomitant]
     Indication: AUTOIMMUNE HEPATITIS
     Dosage: 300 MG DAILY
     Route: 048
     Dates: start: 20030101
  7. LOBU [Concomitant]
     Indication: ANALGESIC THERAPY
     Dates: start: 20111201
  8. CEFOTIAM HYDROCHLORIDE [Concomitant]
     Indication: ANTIBIOTIC THERAPY
     Dosage: 2 GRAM DAILY
     Dates: start: 20120107, end: 20120111
  9. ASCORBIC ACID [Concomitant]
     Route: 048
     Dates: start: 20120108, end: 20120111
  10. MIRACLID [Concomitant]
     Dosage: 200 IU (1,000) DAILY
     Dates: start: 20120109, end: 20120111
  11. DEPAKENE [Suspect]
     Indication: CONVULSION PROPHYLAXIS
     Dosage: 800 MG DAILY
     Route: 048
     Dates: start: 20111213, end: 20120105
  12. FERROUS CITRATE [Concomitant]
     Dosage: 100 MG DAILY
     Route: 048
     Dates: start: 20111201, end: 20120106
  13. VITAMEDIN [Concomitant]
     Route: 048
     Dates: start: 20120108, end: 20120111
  14. MUCOSTA [Concomitant]
     Route: 048
     Dates: start: 20111201
  15. CANDESARTAN CILEXETIL [Concomitant]
     Indication: HYPERTENSION
     Dosage: 8 MG DAILY
     Route: 048
     Dates: start: 20100901, end: 20120108
  16. FAMOTIDINE [Concomitant]
     Dosage: 40 MG DAILY
     Route: 048
     Dates: start: 20030101

REACTIONS (1)
  - TOXIC EPIDERMAL NECROLYSIS [None]
